FAERS Safety Report 16960102 (Version 2)
Quarter: 2019Q4

REPORT INFORMATION
  Report Type: Spontaneous
  Country: US (occurrence: US)
  Receive Date: 20191025
  Receipt Date: 20191029
  Transmission Date: 20200122
  Serious: Yes (Hospitalization)
  Sender: FDA-Public Use
  Company Number: US-BAXTER-2019BAX020927

PATIENT
  Age: 74 Year
  Sex: Female
  Weight: 97.61 kg

DRUGS (1)
  1. EXTRANEAL [Suspect]
     Active Substance: CALCIUM CHLORIDE\ICODEXTRIN\MAGNESIUM CHLORIDE\SODIUM CHLORIDE\SODIUM LACTATE
     Indication: PERITONEAL DIALYSIS
     Route: 033

REACTIONS (7)
  - Fibula fracture [Recovering/Resolving]
  - Fall [Recovering/Resolving]
  - Urine output decreased [Not Recovered/Not Resolved]
  - Tibia fracture [Recovering/Resolving]
  - Urinary incontinence [Not Recovered/Not Resolved]
  - Ultrafiltration failure [Unknown]
  - Mobility decreased [Recovered/Resolved]

NARRATIVE: CASE EVENT DATE: 20190805
